FAERS Safety Report 12909739 (Version 2)
Quarter: 2016Q4

REPORT INFORMATION
  Report Type: Spontaneous
  Country: IT (occurrence: IT)
  Receive Date: 20161104
  Receipt Date: 20161121
  Transmission Date: 20170207
  Serious: Yes (Other)
  Sender: FDA-Public Use
  Company Number: IT-ACCORD-045336

PATIENT
  Age: 48 Year
  Sex: Female
  Weight: 57 kg

DRUGS (5)
  1. SOLDESAM LABORATORIO FARMACOLOGICO MILANESE [Concomitant]
     Indication: PREMEDICATION
     Route: 042
     Dates: start: 20160919, end: 20161021
  2. RANITIDINE. [Concomitant]
     Active Substance: RANITIDINE
     Route: 042
     Dates: start: 20160919, end: 20161021
  3. TRIMETON BAYER [Concomitant]
     Indication: PREMEDICATION
     Route: 042
     Dates: start: 20160919, end: 20161021
  4. PACLITAXEL ACCORD [Suspect]
     Active Substance: PACLITAXEL
     Indication: BREAST CANCER
     Route: 042
     Dates: start: 20160919, end: 20160919
  5. HERCEPTIN ROCHE REGISTRATION LIMITED [Concomitant]
     Route: 042
     Dates: start: 20160919, end: 20161021

REACTIONS (2)
  - Urticaria [Recovered/Resolved]
  - Eczema [Recovered/Resolved]

NARRATIVE: CASE EVENT DATE: 20160920
